FAERS Safety Report 4402283-0 (Version None)
Quarter: 2004Q3

REPORT INFORMATION
  Report Type: 
  Country: None (occurrence: None)
  Receive Date: 20040720
  Receipt Date: 20040322
  Transmission Date: 20050211
  Serious: Yes (Hospitalization)
  Sender: FDA-Public Use
  Company Number: FR-GLAXOSMITHKLINE-B0327451A

PATIENT
  Age: 57 Year
  Sex: Female
  Weight: 53 kg

DRUGS (12)
  1. VALACYCLOVIR HCL [Suspect]
     Dosage: 500MG THREE TIMES PER DAY
     Route: 048
     Dates: start: 20030117, end: 20030212
  2. IMUREL [Suspect]
     Route: 048
     Dates: start: 20030101, end: 20030210
  3. BACTRIM [Suspect]
     Dosage: 1UNIT PER DAY
     Route: 048
     Dates: start: 20030101, end: 20030212
  4. OFLOCET [Suspect]
     Indication: ESCHERICHIA INFECTION
     Dosage: 200MG PER DAY
     Route: 048
     Dates: start: 20030129, end: 20030207
  5. OMEPRAZOLE [Suspect]
     Dosage: 1U PER DAY
     Route: 048
     Dates: start: 20030117, end: 20030210
  6. PROGRAF [Suspect]
     Dosage: 2.5MG TWICE PER DAY
     Route: 048
     Dates: start: 20030101
  7. TARDYFERON B9 [Concomitant]
     Route: 048
  8. SECTRAL [Concomitant]
     Route: 048
  9. LEXOMIL [Concomitant]
     Route: 048
  10. LASIX [Concomitant]
     Route: 048
  11. CORTANCYL [Concomitant]
     Route: 048
  12. CALCIPARINE [Concomitant]
     Route: 058
     Dates: start: 20030120, end: 20030222

REACTIONS (4)
  - HAEMATOMA [None]
  - HAEMOLYSIS [None]
  - LEUKOPENIA [None]
  - NEUTROPENIA [None]
